FAERS Safety Report 5368415-5 (Version None)
Quarter: 2007Q2

REPORT INFORMATION
  Report Type: 
  Country: None (occurrence: None)
  Receive Date: 20070620
  Receipt Date: 20070605
  Transmission Date: 20071010
  Serious: Yes (Death)
  Sender: FDA-Public Use
  Company Number: 2007RR-07971

PATIENT
  Age: 79 Year
  Sex: Male

DRUGS (14)
  1. CHLORPHENIRAMINE (CHLORPHENAMINE) UNKNOWN [Suspect]
     Indication: ADVERSE DRUG REACTION
     Dosage: 4 MG TID, ORAL
     Route: 048
     Dates: start: 20070228, end: 20070307
  2. QUININE SULPHATE (QUININE) UNKNOWN [Suspect]
     Indication: MUSCLE SPASMS
     Dosage: 300 MG, QD, ORAL
     Route: 048
     Dates: start: 20070216, end: 20070309
  3. SIMVASTATIN [Suspect]
     Indication: BLOOD CHOLESTEROL INCREASED
     Dosage: 20 MG, QD, ORAL
     Route: 048
     Dates: end: 20070305
  4. TIGECYLINE (TIGECYLINE) [Suspect]
     Indication: ENTEROBACTER INFECTION
     Dosage: SEE IMAGE
     Route: 042
     Dates: start: 20070305, end: 20070305
  5. TIGECYLINE (TIGECYLINE) [Suspect]
     Indication: ENTEROBACTER INFECTION
     Dosage: SEE IMAGE
     Route: 042
     Dates: start: 20070306, end: 20070307
  6. TIGECYLINE (TIGECYLINE) [Suspect]
     Indication: ENTEROBACTER INFECTION
     Dosage: SEE IMAGE
     Route: 042
     Dates: start: 20070310, end: 20070321
  7. ASPIRIN [Concomitant]
  8. CIPROFLOXACIN [Concomitant]
  9. CO-AMOXICLAV (AMOXICILLIN) [Concomitant]
  10. FOLIC ACID [Concomitant]
  11. FRAGMIN [Concomitant]
  12. LANSOPRAZOLE [Concomitant]
  13. LEVOTHYROXINE SODIUM [Concomitant]
  14. MORPHINE SUL INJ [Concomitant]

REACTIONS (7)
  - ALANINE AMINOTRANSFERASE INCREASED [None]
  - BLOOD ALKALINE PHOSPHATASE INCREASED [None]
  - BLOOD BILIRUBIN INCREASED [None]
  - BLOOD CHOLESTEROL INCREASED [None]
  - ENTEROBACTER INFECTION [None]
  - LIVER FUNCTION TEST ABNORMAL [None]
  - STAPHYLOCOCCAL INFECTION [None]
